FAERS Safety Report 7250812-4 (Version None)
Quarter: 2011Q1

REPORT INFORMATION
  Report Type: 
  Country: None (occurrence: None)
  Receive Date: 20110128
  Receipt Date: 20110119
  Transmission Date: 20110831
  Serious: Yes (Hospitalization)
  Sender: FDA-Public Use
  Company Number: DE-BRISTOL-MYERS SQUIBB COMPANY-15511884

PATIENT
  Age: 66 Year
  Sex: Male
  Weight: 69 kg

DRUGS (3)
  1. GEMCITABINE HCL [Suspect]
     Indication: NON-SMALL CELL LUNG CANCER
     Dosage: DAY 1 AND 8 EVERY 3 WKS RECENT DOSE:28JUL2009 ACTUAL DOSE:2219MG
     Route: 042
     Dates: start: 20090728
  2. CARBOPLATIN [Suspect]
     Indication: NON-SMALL CELL LUNG CANCER
     Dosage: 1 DF:AUC5(ACUTAL DOSE:469.3MG) ON DAY 1 EVERY 3 WKS RECENT DOSE:28JUL2009
     Route: 042
     Dates: start: 20090728
  3. CETUXIMAB [Suspect]
     Indication: NON-SMALL CELL LUNG CANCER
     Dosage: ON DAY 1 OF CYCLE 1  THEN 250MG/M2 WKS(ACTUAL DOSE:740MG) RECENT INF:28JUL2009
     Route: 042
     Dates: start: 20090728

REACTIONS (2)
  - HEADACHE [None]
  - BRONCHOPNEUMONIA [None]
